FAERS Safety Report 4554705-2 (Version None)
Quarter: 2004Q4

REPORT INFORMATION
  Report Type: 
  Country: None (occurrence: None)
  Receive Date: 20041227
  Receipt Date: 20041103
  Transmission Date: 20050328
  Serious: No
  Sender: FDA-Public Use
  Company Number: US097996

PATIENT
  Sex: Male

DRUGS (4)
  1. SENSIPAR [Suspect]
     Indication: HYPERPARATHYROIDISM SECONDARY
     Dosage: 30 MG,  1 IN 1 DAYS, PO
     Route: 048
     Dates: start: 20040901
  2. PHENYTOIN SODIUM CAP [Concomitant]
  3. RISPERIDONE [Concomitant]
  4. FLUOXETINE HYDROCHLORIDE [Concomitant]

REACTIONS (2)
  - CONVULSION [None]
  - HYPOCALCAEMIA [None]
